FAERS Safety Report 6404911-7 (Version None)
Quarter: 2009Q4

REPORT INFORMATION
  Report Type: 
  Country: None (occurrence: None)
  Receive Date: 20091013
  Receipt Date: 20090929
  Transmission Date: 20100525
  Serious: Yes (Hospitalization)
  Sender: FDA-Public Use
  Company Number: 8048745

PATIENT
  Age: 46 Year
  Sex: Female
  Weight: 69.9 kg

DRUGS (7)
  1. CDP870 [Suspect]
     Indication: RHEUMATOID ARTHRITIS
     Dosage: 400 MG 1/2W SC
     Route: 058
     Dates: start: 20051220, end: 20071204
  2. CDP870 [Suspect]
     Indication: RHEUMATOID ARTHRITIS
     Dosage: 2 MG 1/2W SC
     Route: 058
     Dates: start: 20071218, end: 20090705
  3. CDP870 [Suspect]
     Indication: RHEUMATOID ARTHRITIS
     Dosage: 2 MG 1/2W SC
     Route: 058
     Dates: start: 20090810
  4. METOTHREXATE [Concomitant]
  5. DICLOFENAC [Concomitant]
  6. FOLIC ACID [Concomitant]
  7. TRAVOPROST [Concomitant]

REACTIONS (6)
  - ABDOMINAL PAIN [None]
  - BREAST CALCIFICATIONS [None]
  - CELLULITIS [None]
  - GRANULOMATOUS LIVER DISEASE [None]
  - HERPES ZOSTER [None]
  - PNEUMONIA [None]
